FAERS Safety Report 5362520-5 (Version None)
Quarter: 2007Q2

REPORT INFORMATION
  Report Type: 
  Country: None (occurrence: None)
  Receive Date: 20070619
  Receipt Date: 20070608
  Transmission Date: 20071010
  Serious: Yes (Disabling)
  Sender: FDA-Public Use
  Company Number: AT-ASTRAZENECA-2007SE03318

PATIENT
  Age: 65 Year
  Sex: Male
  Weight: 85 kg

DRUGS (1)
  1. BLOPRESS PLUS [Suspect]
     Indication: HYPERTENSION
     Dosage: 8 MG CANDESARTAN CILEXETIL PLUS 12.5 MG HCT
     Route: 048
     Dates: start: 20070301, end: 20070507

REACTIONS (1)
  - PSORIASIS [None]
